FAERS Safety Report 9156866 (Version 1)
Quarter: 2013Q1

REPORT INFORMATION
  Report Type: Spontaneous
  Country: US (occurrence: US)
  Receive Date: 20130312
  Receipt Date: 20130312
  Transmission Date: 20140127
  Serious: Yes (Hospitalization, Other)
  Sender: FDA-Public Use
  Company Number: US-BAYER-2013-028323

PATIENT
  Age: 43 Year
  Sex: Female
  Weight: 62.13 kg

DRUGS (16)
  1. YAZ [Suspect]
     Indication: CONTRACEPTION
     Dosage: UNK
  2. YAZ [Suspect]
     Indication: CONTRACEPTION
     Dosage: UNK
     Dates: start: 20081124, end: 20081217
  3. FLAGYL [Concomitant]
     Indication: PARASITIC GASTROENTERITIS
     Dosage: 250 MG, UNK
  4. LYRICA [Concomitant]
     Dosage: 50 MG, UNK
  5. GABAPENTIN [Concomitant]
     Dosage: 600 MG, UNK
  6. AUGMENTIN [Concomitant]
     Indication: SINUSITIS
     Dosage: 875 MG, BID
  7. CITALOPRAM [Concomitant]
     Dosage: 20 MG, UNK
  8. CITALOPRAM [Concomitant]
     Dosage: 20 MG, UNK
     Dates: start: 20081107, end: 20081210
  9. GEODON [Concomitant]
     Dosage: 60 MG, AT BED TIME
     Route: 048
  10. GEODON [Concomitant]
     Dosage: 60 MG, ONCE
     Dates: start: 20081109, end: 20081210
  11. AMBIEN [Concomitant]
     Dosage: 12.5 MG, UNK
  12. AMBIEN [Concomitant]
     Dosage: 12.5 MG, UNK
     Dates: start: 20081107, end: 20081215
  13. SYNTHROID [Concomitant]
     Dosage: 25 ?G, UNK
  14. CLONAZEPAM [Concomitant]
     Dosage: 2 MG, UNK
  15. HYDROCODONE [Concomitant]
     Dosage: 5 MG/500 MG
  16. CELEXA [Concomitant]
     Dosage: 60 MG, DAILY

REACTIONS (2)
  - Pulmonary embolism [None]
  - Cholecystitis [None]
